FAERS Safety Report 6241578-5 (Version None)
Quarter: 2009Q2

REPORT INFORMATION
  Report Type: 
  Country: None (occurrence: None)
  Receive Date: 20090623
  Receipt Date: 20050617
  Transmission Date: 20091009
  Serious: Yes (Hospitalization)
  Sender: FDA-Public Use
  Company Number: ES-ROCHE-383143

PATIENT
  Sex: Male
  Weight: 85 kg

DRUGS (50)
  1. DACLIZUMAB [Suspect]
     Dosage: BASELINE VISIT
     Route: 042
     Dates: start: 20040921
  2. DACLIZUMAB [Suspect]
     Dosage: FREQUENCY PER PROTOCOL.
     Route: 042
     Dates: start: 20041007, end: 20041117
  3. MYCOPHENOLATE MOFETIL [Suspect]
     Route: 048
     Dates: start: 20040921
  4. MYCOPHENOLATE MOFETIL [Suspect]
     Route: 048
     Dates: start: 20040922
  5. MYCOPHENOLATE MOFETIL [Suspect]
     Route: 048
     Dates: start: 20040923
  6. MYCOPHENOLATE MOFETIL [Suspect]
     Route: 048
     Dates: start: 20050128
  7. CYCLOSPORINE [Suspect]
     Dosage: DRUG NAME: CYCLOSPORINE
     Route: 048
     Dates: start: 20040921
  8. CYCLOSPORINE [Suspect]
     Route: 048
     Dates: start: 20040922, end: 20050128
  9. SIROLIMUS [Suspect]
     Route: 048
     Dates: start: 20040128
  10. SIROLIMUS [Suspect]
     Route: 048
     Dates: start: 20050130
  11. SIROLIMUS [Suspect]
     Route: 048
     Dates: start: 20050701
  12. PREDNISONE [Suspect]
     Route: 048
     Dates: start: 20040924, end: 20041223
  13. PREDNISONE [Suspect]
     Route: 048
     Dates: start: 20041224, end: 20051006
  14. PREDNISONE [Suspect]
     Route: 048
     Dates: start: 20051007
  15. METHYLPREDNISOLONE [Suspect]
     Route: 042
     Dates: start: 20040921, end: 20040924
  16. FUROSEMIDE [Concomitant]
     Route: 048
     Dates: start: 20040924
  17. RANUBER [Concomitant]
     Route: 048
     Dates: start: 20040923
  18. AUGMENTIN [Concomitant]
     Dosage: DRUG NAME: AUGMENTINE, ROUTE: ORAL.
     Route: 050
     Dates: start: 20040921, end: 20040922
  19. AUGMENTIN [Concomitant]
     Dosage: ROUTE: INTRAVENOUS, FORMULATION: VIAL
     Route: 050
     Dates: start: 20041006, end: 20041018
  20. AUGMENTIN [Concomitant]
     Dosage: DRUG NAME: AUGMENTINE
     Route: 048
     Dates: start: 20041019, end: 20041031
  21. AUGMENTIN [Concomitant]
     Route: 048
     Dates: start: 20041213, end: 20041230
  22. AUGMENTIN [Concomitant]
     Route: 048
     Dates: start: 20050112, end: 20050201
  23. AMLODIPINO [Concomitant]
     Route: 048
     Dates: start: 20041029
  24. DARBEPOETIN ALFA [Concomitant]
     Route: 058
     Dates: start: 20040925
  25. DARBEPOETIN ALFA [Concomitant]
     Dosage: FORMULATION: VIAL
     Route: 058
     Dates: start: 20041009, end: 20041017
  26. DARBEPOETIN ALFA [Concomitant]
     Route: 058
     Dates: start: 20041103
  27. DARBEPOETIN ALFA [Concomitant]
     Route: 058
     Dates: start: 20041111
  28. DARBEPOETIN ALFA [Concomitant]
     Route: 058
     Dates: start: 20041210
  29. DARBEPOETIN ALFA [Concomitant]
     Route: 058
     Dates: start: 20041224
  30. AMOXICILLIN [Concomitant]
     Dosage: FORMULATION: VIAL.
     Route: 042
     Dates: start: 20041015, end: 20041018
  31. AMOXICILLIN [Concomitant]
     Route: 048
     Dates: start: 20041019, end: 20041020
  32. AMOXICILLIN [Concomitant]
     Route: 048
     Dates: start: 20041111
  33. AMOXICILLIN [Concomitant]
     Route: 048
     Dates: start: 20041112, end: 20041120
  34. AMOXICILLIN [Concomitant]
     Route: 048
     Dates: start: 20041213, end: 20041230
  35. AMOXICILLIN [Concomitant]
     Route: 048
     Dates: start: 20050112, end: 20050119
  36. AMPICILLIN [Concomitant]
     Dosage: FORMULATION: VIAL
     Route: 042
     Dates: start: 20041110, end: 20041112
  37. AZTREONAM [Concomitant]
     Dosage: ROUTE: INTRAVENOUS, FORMULATION: VIAL.
     Route: 050
     Dates: start: 20040921, end: 20040924
  38. AZTREONAM [Concomitant]
     Dosage: ROUTE: ORAL, FORMULATION: VIAL.
     Route: 050
     Dates: start: 20041028, end: 20041104
  39. AZTREONAM [Concomitant]
     Dosage: FORMULATION: VIAL
     Route: 050
     Dates: start: 20041105, end: 20041113
  40. CIPROFLOXACIN [Concomitant]
     Route: 048
     Dates: start: 20041005, end: 20041007
  41. DOXAZOSIN MESYLATE [Concomitant]
     Route: 048
     Dates: start: 20041227
  42. GANCICLOVIR [Concomitant]
     Dosage: FORMULATION: VIAL
     Route: 042
     Dates: start: 20041027, end: 20041103
  43. GANCICLOVIR [Concomitant]
     Route: 042
     Dates: start: 20041215, end: 20050101
  44. GANCICLOVIR [Concomitant]
     Route: 042
     Dates: start: 20050128, end: 20050219
  45. TAZOCEL [Concomitant]
     Dosage: ROUTE: INTRAVENOUS. FORMULATION: VIAL
     Route: 050
     Dates: start: 20041008
  46. TAZOCEL [Concomitant]
     Dosage: ROUTE: ORAL
     Route: 050
     Dates: start: 20041009
  47. TAZOCEL [Concomitant]
     Dosage: FORMULATION: VIAL.
     Route: 050
     Dates: start: 20041015, end: 20041016
  48. TAZOCEL [Concomitant]
     Dosage: FORMULATION: VIAL
     Route: 050
     Dates: start: 20041108, end: 20041213
  49. TAZOCEL [Concomitant]
     Dosage: FORMULATION: VIAL.
     Route: 050
     Dates: start: 20050108, end: 20050112
  50. VALGANCICLOVIR HCL [Concomitant]
     Route: 048
     Dates: start: 20041103, end: 20041122

REACTIONS (5)
  - COMPLICATIONS OF TRANSPLANTED KIDNEY [None]
  - CONGENITAL CYSTIC KIDNEY DISEASE [None]
  - CYTOMEGALOVIRUS INFECTION [None]
  - CYTOMEGALOVIRUS VIRAEMIA [None]
  - URINARY TRACT INFECTION [None]
